FAERS Safety Report 5089554-2 (Version None)
Quarter: 2006Q3

REPORT INFORMATION
  Report Type: 
  Country: None (occurrence: None)
  Receive Date: 20060727
  Receipt Date: 20060602
  Transmission Date: 20061208
  Serious: Yes (Other)
  Sender: FDA-Public Use
  Company Number: 2006073253

PATIENT
  Age: 36 Year
  Sex: Female
  Weight: 122.4712 kg

DRUGS (2)
  1. LYRICA [Suspect]
     Indication: HEADACHE
     Dosage: 300 MG (100 MG, 3 IN 1 D), UNKNOWN
     Dates: start: 20060101
  2. ATACAND [Concomitant]

REACTIONS (10)
  - ANXIETY [None]
  - DRUG WITHDRAWAL SYNDROME [None]
  - FEELING ABNORMAL [None]
  - FEELING HOT AND COLD [None]
  - INSOMNIA [None]
  - MUSCLE TWITCHING [None]
  - PANIC ATTACK [None]
  - PRURITUS [None]
  - TREMOR [None]
  - URTICARIA [None]
